FAERS Safety Report 8812276 (Version 1)
Quarter: 2012Q4

REPORT INFORMATION
  Report Type: 
  Country: US (occurrence: US)
  Receive Date: 20120927
  Receipt Date: 20120927
  Transmission Date: 20130627
  Serious: Yes (Death, Other)
  Sender: FDA-Public Use
  Company Number: US-ROCHE-1101915

PATIENT
  Sex: Male

DRUGS (1)
  1. AVASTIN [Suspect]
     Indication: RENAL CANCER
     Route: 065

REACTIONS (5)
  - Condition aggravated [Unknown]
  - Respiratory failure [Fatal]
  - Paralysis [Unknown]
  - Pain [Unknown]
  - Confusional state [Unknown]
